FAERS Safety Report 4653538-6 (Version None)
Quarter: 2005Q2

REPORT INFORMATION
  Report Type: 
  Country: None (occurrence: None)
  Receive Date: 20050503
  Receipt Date: 20050422
  Transmission Date: 20051028
  Serious: Yes (Death)
  Sender: FDA-Public Use
  Company Number: A03200501181

PATIENT
  Sex: 0

DRUGS (4)
  1. AMBIEN [Suspect]
     Indication: INSOMNIA
     Dosage: ORAL
     Route: 048
  2. AMBIEN [Suspect]
     Indication: INSOMNIA
     Dosage: 10 MG HS - ORAL
     Route: 048
  3. INSULIN [Suspect]
     Dosage: SUBCUTANEOUS
     Route: 058
  4. ALCOHOL - LIQUID [Suspect]
     Dosage: ORAL
     Route: 048

REACTIONS (2)
  - ALCOHOL USE [None]
  - COMPLETED SUICIDE [None]
